FAERS Safety Report 8620721-4 (Version None)
Quarter: 2012Q3

REPORT INFORMATION
  Report Type: 
  Country: None (occurrence: None)
  Receive Date: 20120824
  Receipt Date: 20120815
  Transmission Date: 20120928
  Serious: Yes (Hospitalization)
  Sender: FDA-Public Use
  Company Number: BR-ASTRAZENECA-2012SE31445

PATIENT
  Age: 67 Year
  Sex: Male
  Weight: 106 kg

DRUGS (4)
  1. LOVAZA [Concomitant]
     Route: 048
  2. ATACAND [Suspect]
     Route: 048
     Dates: start: 20070101
  3. ATACAND [Suspect]
     Indication: HYPERTENSION
     Route: 048
     Dates: start: 20070101, end: 20070101
  4. ASPIRIN [Concomitant]
     Dosage: 2 TABLETS
     Route: 048
     Dates: start: 19920101

REACTIONS (3)
  - BLOOD PRESSURE DECREASED [None]
  - MYOCARDIAL ISCHAEMIA [None]
  - GLUCOSE TOLERANCE IMPAIRED [None]
